FAERS Safety Report 9527242 (Version 2)
Quarter: 2013Q3

REPORT INFORMATION
  Report Type: Spontaneous
  Country: JP (occurrence: JP)
  Receive Date: 20130917
  Receipt Date: 20130917
  Transmission Date: 20140515
  Serious: Yes (Other)
  Sender: FDA-Public Use
  Company Number: JP-009507513-1308JPN011259

PATIENT
  Age: 4 Decade
  Sex: Male

DRUGS (4)
  1. GASTER [Suspect]
     Indication: PROPHYLAXIS
     Dosage: DAILY DOSE: 40MG
     Route: 042
     Dates: start: 20130726, end: 20130819
  2. FLUMARIN [Suspect]
     Dosage: UNK
     Dates: end: 20130819
  3. MEROPENEM [Suspect]
     Dosage: DAILY DOSE UNKNOWN
     Route: 065
     Dates: end: 20130819
  4. CILASTATIN SODIUM\IMIPENEM [Suspect]
     Dosage: DAILY DOSE UNKNOWN
     Route: 065
     Dates: end: 20130819

REACTIONS (3)
  - Pyrexia [Recovered/Resolved]
  - Off label use [Unknown]
  - Fungal infection [Recovered/Resolved]
